FAERS Safety Report 20960377 (Version 2)
Quarter: 2022Q3

REPORT INFORMATION
  Report Type: Spontaneous
  Country: JP (occurrence: JP)
  Receive Date: 20220615
  Receipt Date: 20220817
  Transmission Date: 20221027
  Serious: Yes (Death, Hospitalization)
  Sender: FDA-Public Use
  Company Number: JP-JNJFOC-20220617797

PATIENT
  Age: 68 Year
  Sex: Male

DRUGS (38)
  1. EDURANT [Suspect]
     Active Substance: RILPIVIRINE HYDROCHLORIDE
     Indication: HIV infection
     Route: 048
     Dates: start: 20141205, end: 20180311
  2. EDURANT [Suspect]
     Active Substance: RILPIVIRINE HYDROCHLORIDE
     Indication: HIV infection
     Route: 048
     Dates: start: 20180319, end: 20181010
  3. INTELENCE [Suspect]
     Active Substance: ETRAVIRINE
     Indication: HIV infection
     Route: 048
     Dates: start: 20130624, end: 20141204
  4. ISENTRESS [Concomitant]
     Active Substance: RALTEGRAVIR POTASSIUM
     Indication: HIV infection
     Route: 048
     Dates: start: 20120927, end: 20141204
  5. TIVICAY [Concomitant]
     Active Substance: DOLUTEGRAVIR SODIUM
     Indication: HIV infection
     Route: 048
     Dates: start: 20141205, end: 20210322
  6. TIVICAY [Concomitant]
     Active Substance: DOLUTEGRAVIR SODIUM
     Route: 048
     Dates: start: 20170401
  7. DESCOVY [Concomitant]
     Active Substance: EMTRICITABINE\TENOFOVIR ALAFENAMIDE FUMARATE
     Indication: HIV infection
     Route: 048
     Dates: start: 20180312, end: 20180318
  8. DESCOVY [Concomitant]
     Active Substance: EMTRICITABINE\TENOFOVIR ALAFENAMIDE FUMARATE
     Indication: HIV infection
     Route: 048
     Dates: start: 20181011, end: 20210322
  9. DOXORUBICIN HYDROCHLORIDE [Concomitant]
     Active Substance: DOXORUBICIN HYDROCHLORIDE
     Dosage: DOSE UNKNOWN
     Route: 042
     Dates: start: 20180619, end: 20180619
  10. DOXORUBICIN HYDROCHLORIDE [Concomitant]
     Active Substance: DOXORUBICIN HYDROCHLORIDE
     Dosage: DOSE UNKNOWN
     Route: 042
     Dates: start: 20180724, end: 20180724
  11. DOXORUBICIN HYDROCHLORIDE [Concomitant]
     Active Substance: DOXORUBICIN HYDROCHLORIDE
     Dosage: DOSE UNKNOWN
     Route: 042
     Dates: start: 20180904, end: 20180904
  12. ACETAMINOPHEN\TRAMADOL [Concomitant]
     Active Substance: ACETAMINOPHEN\TRAMADOL
     Dosage: DOSE UNKNOWN
     Route: 048
     Dates: start: 20180907, end: 20181105
  13. SULFAMETHOXAZOLE\TRIMETHOPRIM [Concomitant]
     Active Substance: SULFAMETHOXAZOLE\TRIMETHOPRIM
     Indication: Prophylaxis
     Dosage: DOSE UNKNOWN
     Route: 048
     Dates: start: 20170401, end: 20210322
  14. ALENDRONATE [Concomitant]
     Active Substance: ALENDRONATE SODIUM
     Dosage: DOSE UNKNOWN
     Route: 065
     Dates: start: 20170401, end: 20210322
  15. PREDONINE [Concomitant]
     Active Substance: PREDNISOLONE
     Dosage: DOSE UNKNOWN
     Route: 065
     Dates: start: 20170401, end: 20210322
  16. ALPHAGAN P [Concomitant]
     Active Substance: BRIMONIDINE TARTRATE
     Dosage: DOSE UNKNOWN
     Route: 047
     Dates: start: 20170401, end: 20210322
  17. CARTEOLOL HYDROCHLORIDE\LATANOPROST [Concomitant]
     Active Substance: CARTEOLOL HYDROCHLORIDE\LATANOPROST
     Dosage: DOSE UNKNOWN
     Route: 047
     Dates: start: 20180312, end: 20210322
  18. ALFACALCIDOL [Concomitant]
     Active Substance: ALFACALCIDOL
     Dosage: DOSE UNKNOWN
     Route: 048
     Dates: start: 20170406, end: 20210322
  19. NEXIUM [Concomitant]
     Active Substance: ESOMEPRAZOLE MAGNESIUM
     Dosage: DOSE UNKNOWN
     Route: 048
     Dates: start: 20181011, end: 20210322
  20. TORSEMIDE [Concomitant]
     Active Substance: TORSEMIDE
     Dosage: DOSE UNKNOWN
     Route: 048
     Dates: start: 20190401, end: 20210322
  21. MAGNESIUM OXIDE [Concomitant]
     Active Substance: MAGNESIUM OXIDE
     Indication: Prophylaxis
     Dosage: DOSE UNKNOWN
     Route: 048
     Dates: start: 20190401, end: 20210322
  22. HYDROMORPHONE HYDROCHLORIDE [Concomitant]
     Active Substance: HYDROMORPHONE HYDROCHLORIDE
     Indication: Cancer pain
     Dosage: DOSE UNKNOWN
     Route: 048
     Dates: start: 20210314, end: 20210322
  23. HYDROMORPHONE HYDROCHLORIDE [Concomitant]
     Active Substance: HYDROMORPHONE HYDROCHLORIDE
     Indication: Cancer pain
     Dosage: DOSE UNKNOWN
     Route: 048
     Dates: start: 20210320, end: 20210322
  24. CAMPHOR\CAPSICUM\METHYL SALICYLATE [Concomitant]
     Active Substance: CAMPHOR\CAPSICUM\METHYL SALICYLATE
     Dosage: DOSE UNKNOWN
     Route: 062
     Dates: start: 20180907, end: 20181105
  25. AMOXICILLIN [Concomitant]
     Active Substance: AMOXICILLIN
     Dosage: DOSE UNKNOWN
     Route: 048
     Dates: start: 20180312, end: 20180318
  26. ALFAROL [Concomitant]
     Active Substance: ALFACALCIDOL
     Dosage: DOSE UNKNOWN
     Route: 048
     Dates: start: 20170401, end: 20170405
  27. SODIUM FERROUS CITRATE [Concomitant]
     Active Substance: SODIUM FERROUS CITRATE
     Dosage: DOSE UNKNOWN
     Route: 048
     Dates: start: 20180312, end: 20180617
  28. RIPASUDIL HYDROCHLORIDE DIHYDRATE [Concomitant]
     Active Substance: RIPASUDIL HYDROCHLORIDE DIHYDRATE
     Dosage: DOSE UNKNOWN
     Route: 047
     Dates: start: 20170401, end: 20180209
  29. CLARITHROMYCIN [Concomitant]
     Active Substance: CLARITHROMYCIN
     Dosage: DOSE UNKNOWN
     Route: 048
     Dates: start: 20180312, end: 20180318
  30. LATANOPROST\TIMOLOL MALEATE [Concomitant]
     Active Substance: LATANOPROST\TIMOLOL MALEATE
     Dosage: DOSE UNKNOWN
     Route: 047
     Dates: start: 20170401, end: 20180311
  31. CELECOXIB [Concomitant]
     Active Substance: CELECOXIB
     Dosage: DOSE UNKNOWN
     Route: 048
     Dates: start: 20170401, end: 20180812
  32. SENNOSIDES [Concomitant]
     Active Substance: SENNOSIDES
     Dosage: DOSE UNKNOWN
     Route: 048
     Dates: start: 20190906, end: 20191001
  33. VONOPRAZAN FUMARATE [Concomitant]
     Active Substance: VONOPRAZAN FUMARATE
     Dosage: DOSE UNKNOWN
     Route: 048
     Dates: start: 20180312, end: 20180318
  34. FAMOTIDINE [Concomitant]
     Active Substance: FAMOTIDINE
     Dosage: DOSE UNKNOWN
     Route: 065
     Dates: start: 20170401, end: 20181014
  35. FUROSEMIDE [Concomitant]
     Active Substance: FUROSEMIDE
     Dosage: DOSE UNKNOWN
     Route: 065
     Dates: start: 20170401, end: 20180215
  36. TORSEMIDE [Concomitant]
     Active Substance: TORSEMIDE
     Dosage: DOSE UNKNOWN
     Route: 048
     Dates: start: 20180216, end: 20181106
  37. LOXOPROFEN [Concomitant]
     Active Substance: LOXOPROFEN
     Dosage: DOSE UNKNOWN
     Route: 065
     Dates: start: 20180908, end: 20181105
  38. LOPERAMIDE HYDROCHLORIDE [Concomitant]
     Active Substance: LOPERAMIDE HYDROCHLORIDE
     Dosage: DOSE UNKNOWN
     Route: 048
     Dates: start: 20170401, end: 20180401

REACTIONS (1)
  - Lung adenocarcinoma [Fatal]

NARRATIVE: CASE EVENT DATE: 20210308
